FAERS Safety Report 7913340-6 (Version None)
Quarter: 2011Q4

REPORT INFORMATION
  Report Type: 
  Country: None (occurrence: None)
  Receive Date: 20111114
  Receipt Date: 20111104
  Transmission Date: 20120403
  Serious: Yes (Hospitalization)
  Sender: FDA-Public Use
  Company Number: US-ASTRAZENECA-2011SE52007

PATIENT
  Age: 51 Year
  Sex: Female

DRUGS (9)
  1. LANTUS [Concomitant]
  2. BENAZEPRIL HYDROCHLORIDE [Concomitant]
  3. BYSTOLIC [Concomitant]
  4. DICYCLOMINE [Concomitant]
  5. NEXIUM [Suspect]
     Route: 048
  6. GABAPENTIN [Concomitant]
  7. SIMVASTATIN [Concomitant]
  8. COUMADIN [Concomitant]
  9. FERROUS SULFATE TAB [Concomitant]

REACTIONS (4)
  - VOMITING [None]
  - NAUSEA [None]
  - DIARRHOEA [None]
  - DRUG DOSE OMISSION [None]
